FAERS Safety Report 13552109 (Version 5)
Quarter: 2018Q2

REPORT INFORMATION
  Report Type: Report from Study
  Country: None (occurrence: US)
  Receive Date: 20170516
  Receipt Date: 20180524
  Transmission Date: 20180711
  Serious: Yes (Hospitalization, Other)
  Sender: FDA-Public Use
  Company Number: US-ABBVIE-17K-163-1971068-00

PATIENT
  Age: 75 Year
  Sex: Male

DRUGS (12)
  1. AFRIN [Suspect]
     Active Substance: OXYMETAZOLINE
     Indication: SINUSITIS
     Route: 065
  2. TERAZOSIN [Concomitant]
     Active Substance: TERAZOSIN\TERAZOSIN HYDROCHLORIDE
     Indication: PRODUCT USED FOR UNKNOWN INDICATION
  3. HYDROCHLOROTHIAZIDE. [Concomitant]
     Active Substance: HYDROCHLOROTHIAZIDE
     Indication: HYPERTENSION
  4. HUMIRA [Suspect]
     Active Substance: ADALIMUMAB
     Route: 058
     Dates: start: 201702
  5. KLOR-CON [Concomitant]
     Active Substance: POTASSIUM CHLORIDE
     Indication: PRODUCT USED FOR UNKNOWN INDICATION
  6. ASPIRIN. [Concomitant]
     Active Substance: ASPIRIN
     Indication: PRODUCT USED FOR UNKNOWN INDICATION
  7. LOVASTATIN. [Concomitant]
     Active Substance: LOVASTATIN
     Indication: BLOOD CHOLESTEROL INCREASED
  8. HUMIRA [Suspect]
     Active Substance: ADALIMUMAB
     Indication: PSORIASIS
     Route: 058
     Dates: start: 20160601, end: 201611
  9. NEXIUM [Concomitant]
     Active Substance: ESOMEPRAZOLE MAGNESIUM
     Indication: GASTROOESOPHAGEAL REFLUX DISEASE
  10. LEVOTHYROXINE. [Concomitant]
     Active Substance: LEVOTHYROXINE
     Indication: HYPOTHYROIDISM
  11. LORAZEPAM. [Concomitant]
     Active Substance: LORAZEPAM
     Indication: ANXIETY
  12. HUMIRA [Suspect]
     Active Substance: ADALIMUMAB
     Route: 058
     Dates: start: 201701, end: 201702

REACTIONS (25)
  - Mole excision [Unknown]
  - Mass [Unknown]
  - Skin irritation [Unknown]
  - Facial pain [Unknown]
  - Pruritus [Recovered/Resolved]
  - Nasal congestion [Not Recovered/Not Resolved]
  - Nocturnal dyspnoea [Not Recovered/Not Resolved]
  - Gastric disorder [Unknown]
  - Depression [Unknown]
  - Asthenia [Unknown]
  - Vasodilatation [Unknown]
  - Nasal discomfort [Unknown]
  - Photosensitivity reaction [Unknown]
  - Psoriasis [Unknown]
  - Pertussis [Unknown]
  - Chest pain [Recovered/Resolved]
  - Sleep apnoea syndrome [Not Recovered/Not Resolved]
  - Erythema [Unknown]
  - Flushing [Not Recovered/Not Resolved]
  - Hypersensitivity [Unknown]
  - Overgrowth fungal [Unknown]
  - Sinusitis [Not Recovered/Not Resolved]
  - Intentional product misuse [Unknown]
  - Depressed mood [Unknown]
  - Therapeutic response shortened [Unknown]

NARRATIVE: CASE EVENT DATE: 201611
